FAERS Safety Report 4957695-3 (Version None)
Quarter: 2006Q1

REPORT INFORMATION
  Report Type: 
  Country: None (occurrence: None)
  Receive Date: 20060330
  Receipt Date: 20060323
  Transmission Date: 20060701
  Serious: Yes (Other)
  Sender: FDA-Public Use
  Company Number: DE-JNJFOC-20060302072

PATIENT
  Age: 41 Year
  Sex: Male
  Weight: 79 kg

DRUGS (1)
  1. INFLIXIMAB [Suspect]
     Route: 042

REACTIONS (1)
  - TUBERCULOSIS [None]
